FAERS Safety Report 6101941-X (Version None)
Quarter: 2009Q1

REPORT INFORMATION
  Report Type: 
  Country: None (occurrence: None)
  Receive Date: 20090304
  Receipt Date: 20090225
  Transmission Date: 20090719
  Serious: Yes (Death, Other)
  Sender: FDA-Public Use
  Company Number: US-GENENTECH-278117

PATIENT
  Age: 54 Year
  Sex: Female

DRUGS (4)
  1. HERCEPTIN [Suspect]
     Indication: BREAST CANCER
     Dosage: 400 MG, SINGLE
     Dates: start: 20090129, end: 20090129
  2. HERCEPTIN [Suspect]
     Dosage: 200 MG, 1/WEEK
     Dates: start: 20090209
  3. DOCETAXEL [Suspect]
     Indication: BREAST CANCER
     Dosage: 150 MG/M2, UNK
     Dates: start: 20090129
  4. CARBOPLATIN [Suspect]
     Indication: BREAST CANCER
     Dosage: UNK
     Dates: start: 20090129

REACTIONS (3)
  - CAECITIS [None]
  - DEATH [None]
  - NEUTROPENIA [None]
